FAERS Safety Report 5207727-2 (Version None)
Quarter: 2006Q4

REPORT INFORMATION
  Report Type: 
  Country: None (occurrence: None)
  Receive Date: 20061030
  Receipt Date: 20060912
  Transmission Date: 20070319
  Serious: No
  Sender: FDA-Public Use
  Company Number: 2006CT000727

PATIENT
  Age: 68 Year
  Sex: Female
  Weight: 61.2356 kg

DRUGS (8)
  1. VENTAVIS [Suspect]
     Indication: PULMONARY HYPERTENSION
     Dosage: 2,5 UG; 5 TO 6X/DA; INH
     Route: 055
     Dates: start: 20030323
  2. DICYCLOMINE [Concomitant]
  3. POTASSIUM CHLORIDE [Concomitant]
  4. SYNTHROID [Concomitant]
  5. LASIX [Concomitant]
  6. METOPROLOL TARTRATE [Concomitant]
  7. TRACLEER [Concomitant]
  8. WARFARIN SODIUM [Concomitant]

REACTIONS (2)
  - DYSPEPSIA [None]
  - THROAT IRRITATION [None]
